FAERS Safety Report 6436248-4 (Version None)
Quarter: 2009Q4

REPORT INFORMATION
  Report Type: 
  Country: None (occurrence: None)
  Receive Date: 20091111
  Receipt Date: 20091110
  Transmission Date: 20100525
  Serious: Yes (Death, Hospitalization)
  Sender: FDA-Public Use
  Company Number: A0763083A

PATIENT
  Age: 67 Year
  Sex: Female
  Weight: 113.6 kg

DRUGS (6)
  1. AVANDIA [Suspect]
     Dosage: 2MG PER DAY
     Route: 048
     Dates: start: 20050405, end: 20061029
  2. GLUCOPHAGE [Concomitant]
  3. METFORMIN [Concomitant]
  4. INSULIN [Concomitant]
  5. LIPITOR [Concomitant]
  6. ZOCOR [Concomitant]

REACTIONS (7)
  - ANKLE FRACTURE [None]
  - ARTERIOSCLEROSIS [None]
  - CARDIAC FAILURE CONGESTIVE [None]
  - CAROTID ARTERY DISEASE [None]
  - CORONARY ARTERY DISEASE [None]
  - MYOCARDIAL INFARCTION [None]
  - SEPSIS SYNDROME [None]
